FAERS Safety Report 4502502-6 (Version None)
Quarter: 2004Q4

REPORT INFORMATION
  Report Type: 
  Country: None (occurrence: None)
  Receive Date: 20041112
  Receipt Date: 20041109
  Transmission Date: 20050328
  Serious: Yes (Hospitalization)
  Sender: FDA-Public Use
  Company Number: HQWYE924821OCT04

PATIENT
  Age: 48 Year
  Sex: Male

DRUGS (9)
  1. ANCARON (AMIODARONE) [Suspect]
     Indication: ATRIAL FIBRILLATION
     Dosage: SEE IMAGE
     Route: 048
     Dates: start: 20040917, end: 20040917
  2. ANCARON (AMIODARONE) [Suspect]
     Indication: ATRIAL FIBRILLATION
     Dosage: SEE IMAGE
     Route: 048
     Dates: start: 20040918, end: 20040924
  3. ANCARON (AMIODARONE) [Suspect]
     Indication: ATRIAL FIBRILLATION
     Dosage: SEE IMAGE
     Route: 048
     Dates: start: 20040925, end: 20040927
  4. ANCARON (AMIODARONE) [Suspect]
     Indication: ATRIAL FIBRILLATION
     Dosage: SEE IMAGE
     Route: 048
     Dates: start: 20040928
  5. CARVEDILOL [Concomitant]
  6. ALDACTONE [Concomitant]
  7. LASIX [Concomitant]
  8. BLOPRESS (CANDESARTAN CILEXETIL) [Concomitant]
  9. WARFARIN SODIUM [Concomitant]

REACTIONS (6)
  - ATRIAL FIBRILLATION [None]
  - BLOOD PRESSURE SYSTOLIC DECREASED [None]
  - CARDIOMEGALY [None]
  - DECREASED APPETITE [None]
  - DIZZINESS [None]
  - NAUSEA [None]
